FAERS Safety Report 13764181 (Version 1)
Quarter: 2017Q3

REPORT INFORMATION
  Report Type: Spontaneous
  Country: HR (occurrence: HR)
  Receive Date: 20170718
  Receipt Date: 20170718
  Transmission Date: 20171127
  Serious: Yes (Other)
  Sender: FDA-Public Use
  Company Number: HR-PFIZER INC-2017308647

PATIENT
  Age: 16 Year
  Sex: Female
  Weight: 54 kg

DRUGS (1)
  1. ZOLOFT [Suspect]
     Active Substance: SERTRALINE HYDROCHLORIDE
     Dosage: TOTALLY 350 MG
     Route: 048
     Dates: start: 20170425, end: 20170425

REACTIONS (4)
  - Suicide attempt [Unknown]
  - Headache [Unknown]
  - Intentional overdose [Unknown]
  - Limb discomfort [Unknown]

NARRATIVE: CASE EVENT DATE: 20170425
